FAERS Safety Report 15347540 (Version 1)
Quarter: 2018Q4

REPORT INFORMATION
  Report Type: Report from Study
  Country: ZA (occurrence: ZA)
  Receive Date: 20180904
  Receipt Date: 20180904
  Transmission Date: 20190204
  Serious: Yes (Death)
  Sender: FDA-Public Use
  Company Number: ZA-PFIZER INC-2018350511

PATIENT
  Age: 27 Year
  Sex: Male

DRUGS (15)
  1. CLOFAZIMINE [Suspect]
     Active Substance: CLOFAZIMINE
     Indication: TUBERCULOSIS
     Dosage: 100 MG, QD
     Route: 048
     Dates: start: 201710, end: 20180721
  2. SLOW MAG [Concomitant]
     Active Substance: MAGNESIUM CHLORIDE
  3. PAS [Suspect]
     Active Substance: AMINOSALICYLIC ACID
     Indication: TUBERCULOSIS
     Dosage: 8 G, QD
     Route: 048
     Dates: start: 20180528, end: 20180721
  4. DELAMANID [Suspect]
     Active Substance: DELAMANID
     Indication: TUBERCULOSIS
     Dosage: 100 MG, BID
     Route: 048
     Dates: start: 20180612, end: 20180721
  5. PZA [Suspect]
     Active Substance: PYRAZINAMIDE
     Indication: TUBERCULOSIS
     Dosage: 1.5 G, QD
     Route: 048
     Dates: start: 20180515, end: 20180721
  6. LINEZOLID. [Suspect]
     Active Substance: LINEZOLID
     Indication: TUBERCULOSIS
     Dosage: 600 MG, QD
     Route: 048
     Dates: start: 20180612, end: 20180721
  7. BDQ (BEDAQUILINE) [Suspect]
     Active Substance: BEDAQUILINE
     Indication: TUBERCULOSIS
     Dosage: 200 MG, THRICE WEEKLY
     Route: 048
     Dates: start: 20180612, end: 20180721
  8. ELTROXIN [Concomitant]
     Active Substance: LEVOTHYROXINE
  9. TERIZIDONE [Suspect]
     Active Substance: TERIZIDONE
     Indication: TUBERCULOSIS
     Dosage: 500 MG, QD
     Route: 048
     Dates: start: 20180528, end: 20180721
  10. CALCIUM GLUCONATE. [Concomitant]
     Active Substance: CALCIUM GLUCONATE
  11. PYRIDOXINE [Concomitant]
     Active Substance: PYRIDOXINE
  12. LEVOFLOX [Suspect]
     Active Substance: LEVOFLOXACIN
     Indication: TUBERCULOSIS
     Dosage: 750 MG, QD
     Route: 048
     Dates: start: 20180515, end: 20180721
  13. FTC [Concomitant]
     Active Substance: EMTRICITABINE
     Dosage: UNK
     Dates: start: 20180604
  14. NVP [Concomitant]
     Dosage: UNK
     Dates: start: 20180604
  15. TDF [Suspect]
     Active Substance: DILOXANIDE FUROATE\TINIDAZOLE
     Indication: ANTIRETROVIRAL THERAPY
     Dosage: UNK
     Dates: start: 20180604, end: 20180721

REACTIONS (1)
  - Acute kidney injury [Fatal]

NARRATIVE: CASE EVENT DATE: 20180721
